FAERS Safety Report 16482335 (Version 1)
Quarter: 2019Q2

REPORT INFORMATION
  Report Type: Spontaneous
  Country: US (occurrence: US)
  Receive Date: 20190627
  Receipt Date: 20190627
  Transmission Date: 20190711
  Serious: No
  Sender: FDA-Public Use
  Company Number: US-SHIRE-US201920602

PATIENT
  Age: 30 Year
  Sex: Male
  Weight: 97.51 kg

DRUGS (1)
  1. LIALDA [Suspect]
     Active Substance: MESALAMINE
     Indication: COLITIS ULCERATIVE
     Dosage: 1.2 MILLIGRAM, 1X/DAY:QD
     Route: 048
     Dates: start: 201806

REACTIONS (3)
  - Unevaluable event [Recovered/Resolved]
  - Memory impairment [Recovered/Resolved]
  - Fear [Recovered/Resolved]

NARRATIVE: CASE EVENT DATE: 20190519
